FAERS Safety Report 5290280-5 (Version None)
Quarter: 2007Q2

REPORT INFORMATION
  Report Type: 
  Country: None (occurrence: None)
  Receive Date: 20070406
  Receipt Date: 20070404
  Transmission Date: 20071010
  Serious: Yes (Other)
  Sender: FDA-Public Use
  Company Number: US-MERCK-0704USA00786

PATIENT
  Age: 14 Year
  Sex: Male

DRUGS (6)
  1. EMEND [Suspect]
     Indication: PROPHYLAXIS OF NAUSEA AND VOMITING
     Route: 048
  2. EMEND [Suspect]
     Route: 048
  3. IFOSFAMIDE [Concomitant]
     Route: 065
  4. DOXORUBICIN [Concomitant]
     Route: 065
  5. ONDANSETRON [Concomitant]
     Route: 065
  6. DECADRON [Concomitant]
     Route: 065

REACTIONS (3)
  - CONFUSIONAL STATE [None]
  - NEUROTOXICITY [None]
  - SOMNOLENCE [None]
